FAERS Safety Report 11826591 (Version 1)
Quarter: 2015Q4

REPORT INFORMATION
  Report Type: Spontaneous
  Country: US (occurrence: US)
  Receive Date: 20151211
  Receipt Date: 20151211
  Transmission Date: 20160305
  Serious: Yes (Other)
  Sender: FDA-Public Use
  Company Number: US-AMGEN-USASP2015131411

PATIENT
  Sex: Female

DRUGS (13)
  1. PROLIA [Suspect]
     Active Substance: DENOSUMAB
     Indication: PRODUCT USED FOR UNKNOWN INDICATION
     Dosage: UNK
     Route: 065
  2. FENTANYL. [Concomitant]
     Active Substance: FENTANYL
  3. LYRICA [Concomitant]
     Active Substance: PREGABALIN
  4. KETAMINE [Concomitant]
     Active Substance: KETAMINE
  5. SINGULAIR [Concomitant]
     Active Substance: MONTELUKAST SODIUM
  6. ONDANSETRON [Concomitant]
     Active Substance: ONDANSETRON
  7. QVAR [Concomitant]
     Active Substance: BECLOMETHASONE DIPROPIONATE
  8. CALCIUM PHOSPHATE [Concomitant]
     Active Substance: CALCIUM PHOSPHATE
  9. REGLAN [Concomitant]
     Active Substance: METOCLOPRAMIDE HYDROCHLORIDE
  10. ACETAMINOPHEN W/HYDROCODONE [Concomitant]
     Active Substance: ACETAMINOPHEN\HYDROCODONE
  11. PROAIR HFA [Concomitant]
     Active Substance: ALBUTEROL SULFATE
  12. LORAZEPAM. [Concomitant]
     Active Substance: LORAZEPAM
  13. TRAZODONE [Concomitant]
     Active Substance: TRAZODONE HYDROCHLORIDE
     Dosage: 250 MG, QD

REACTIONS (15)
  - Myositis [Unknown]
  - Peripheral sensory neuropathy [Unknown]
  - Ataxia [Unknown]
  - Nicotinic acid deficiency [Unknown]
  - Autonomic neuropathy [Unknown]
  - Restless legs syndrome [Unknown]
  - Myalgia [Unknown]
  - Polyneuropathy idiopathic progressive [Unknown]
  - Neuralgia [Unknown]
  - Insomnia [Unknown]
  - Fractured sacrum [Unknown]
  - Pain [Unknown]
  - Infection [Unknown]
  - Anxiety [Unknown]
  - Vitamin B12 deficiency [Unknown]
